FAERS Safety Report 13064366 (Version 1)
Quarter: 2016Q4

REPORT INFORMATION
  Report Type: Spontaneous
  Country: US (occurrence: US)
  Receive Date: 20161223
  Receipt Date: 20161223
  Transmission Date: 20170207
  Serious: No
  Sender: FDA-Public Use
  Company Number: None

PATIENT
  Age: 51 Year
  Sex: Female

DRUGS (1)
  1. COPAXONE [Suspect]
     Active Substance: GLATIRAMER ACETATE

REACTIONS (8)
  - Tremor [None]
  - Pain [None]
  - Asthenia [None]
  - Nuclear magnetic resonance imaging abnormal [None]
  - Suicidal ideation [None]
  - Impaired work ability [None]
  - Depression [None]
  - Pruritus [None]

NARRATIVE: CASE EVENT DATE: 20161204
